FAERS Safety Report 7374610-6 (Version None)
Quarter: 2011Q1

REPORT INFORMATION
  Report Type: 
  Country: None (occurrence: None)
  Receive Date: 20110325
  Receipt Date: 20100503
  Transmission Date: 20110831
  Serious: No
  Sender: FDA-Public Use
  Company Number: US-MYLANLABS-2010S1007950

PATIENT
  Age: 50 Year
  Sex: Female

DRUGS (11)
  1. FENTANYL-100 [Suspect]
     Indication: PAIN
     Dosage: CHANGED Q72H
     Route: 062
  2. OXYCODONE [Concomitant]
     Indication: PAIN
     Route: 048
  3. FENTANYL-100 [Suspect]
     Indication: PANCREATITIS
     Dosage: CHANGED Q72H
     Route: 062
  4. FENTANYL-100 [Suspect]
     Dosage: CHANGED Q72H
     Route: 062
  5. TRAZODONE [Concomitant]
     Indication: INSOMNIA
     Route: 048
  6. PREDNISONE [Concomitant]
     Route: 048
  7. LEVOXYL [Concomitant]
     Route: 048
  8. KLONOPIN [Concomitant]
     Indication: NERVOUSNESS
     Route: 048
  9. SENNA [Concomitant]
     Indication: LAXATIVE SUPPORTIVE CARE
     Route: 048
  10. FENTANYL-100 [Suspect]
     Dosage: CHANGED Q72H
     Route: 062
  11. LACTULOSE [Concomitant]
     Indication: LAXATIVE SUPPORTIVE CARE
     Route: 048

REACTIONS (1)
  - OPIATES NEGATIVE [None]
